FAERS Safety Report 17898116 (Version 1)
Quarter: 2020Q2

REPORT INFORMATION
  Report Type: Spontaneous
  Country: US (occurrence: US)
  Receive Date: 20200615
  Receipt Date: 20200615
  Transmission Date: 20200714
  Serious: No
  Sender: FDA-Public Use
  Company Number: US-PERRIGO-20US005789

PATIENT
  Age: 41 Year
  Sex: Male
  Weight: 136.05 kg

DRUGS (1)
  1. ALBUTEROL SULFATE. [Suspect]
     Active Substance: ALBUTEROL SULFATE
     Indication: ASTHMA
     Dosage: 180 MCG, PRN
     Route: 055
     Dates: start: 20200327, end: 20200402

REACTIONS (2)
  - Dysgeusia [Not Recovered/Not Resolved]
  - Drug ineffective [Unknown]

NARRATIVE: CASE EVENT DATE: 20200327
